FAERS Safety Report 11055182 (Version 1)
Quarter: 2015Q2

REPORT INFORMATION
  Report Type: Spontaneous
  Country: US (occurrence: None)
  Receive Date: 20150421
  Receipt Date: 20150421
  Transmission Date: 20150821
  Serious: Yes (Other)
  Sender: FDA-Public Use
  Company Number: None

PATIENT
  Age: 52 Year
  Sex: Female
  Weight: 80.29 kg

DRUGS (9)
  1. BIOTIN [Concomitant]
     Active Substance: BIOTIN
  2. HUMIRA [Suspect]
     Active Substance: ADALIMUMAB
     Indication: HIDRADENITIS
     Dosage: 40 MG PEN  EVERY 2 WEEKS  GIVEN INTO/UNDER THE SKIN
     Route: 058
  3. VITAMIN D [Concomitant]
     Active Substance: CHOLECALCIFEROL
  4. TURMERIC [Concomitant]
     Active Substance: TURMERIC
  5. POTASSIUM CITRATE. [Concomitant]
     Active Substance: POTASSIUM CITRATE
  6. Q-VAR INHALER [Concomitant]
  7. ZINC [Concomitant]
     Active Substance: ZINC\ZINC CHLORIDE
  8. GINGKO BILOBA [Concomitant]
  9. BLACK COHOSH [Concomitant]
     Active Substance: BLACK COHOSH

REACTIONS (1)
  - Alopecia [None]

NARRATIVE: CASE EVENT DATE: 20150412
